FAERS Safety Report 6402704-8 (Version None)
Quarter: 2009Q4

REPORT INFORMATION
  Report Type: 
  Country: None (occurrence: None)
  Receive Date: 20091009
  Receipt Date: 20091001
  Transmission Date: 20100525
  Serious: Yes (Hospitalization)
  Sender: FDA-Public Use
  Company Number: 8052879

PATIENT
  Age: 42 Year
  Sex: Male

DRUGS (4)
  1. XYZAL [Suspect]
  2. ZYRTEC [Concomitant]
  3. PHENERGAN HCL [Concomitant]
  4. MEDROL [Concomitant]

REACTIONS (2)
  - CONDITION AGGRAVATED [None]
  - MALAISE [None]
